FAERS Safety Report 9332661 (Version 3)
Quarter: 2013Q4

REPORT INFORMATION
  Report Type: Report from Study
  Country: US (occurrence: US)
  Receive Date: 20130606
  Receipt Date: 20131008
  Transmission Date: 20140711
  Serious: Yes (Hospitalization)
  Sender: FDA-Public Use
  Company Number: US-JNJFOC-20130600143

PATIENT
  Age: 14 Year
  Sex: Female
  Weight: 36.6 kg

DRUGS (10)
  1. REMICADE [Suspect]
     Indication: CROHN^S DISEASE
     Route: 042
     Dates: start: 20110627, end: 20130124
  2. HUMIRA [Concomitant]
     Indication: CROHN^S DISEASE
     Route: 065
     Dates: start: 20130301
  3. BUDESONIDE [Concomitant]
     Indication: CROHN^S DISEASE
     Route: 065
  4. METHOTREXATE [Concomitant]
     Indication: CROHN^S DISEASE
     Route: 065
  5. VITAMIN D [Concomitant]
     Route: 065
  6. PREVACID [Concomitant]
     Route: 065
  7. CALCIUM [Concomitant]
     Route: 065
  8. IRON [Concomitant]
     Route: 065
  9. FOLIC ACID [Concomitant]
     Route: 065
  10. PREDNISONE [Concomitant]
     Route: 065

REACTIONS (1)
  - Crohn^s disease [Recovered/Resolved]
